FAERS Safety Report 8212655-4 (Version None)
Quarter: 2012Q1

REPORT INFORMATION
  Report Type: 
  Country: None (occurrence: None)
  Receive Date: 20120315
  Receipt Date: 20120307
  Transmission Date: 20120608
  Serious: Yes (Hospitalization)
  Sender: FDA-Public Use
  Company Number: US-BAYER-2012-023572

PATIENT
  Age: 23 Year
  Sex: Female
  Weight: 59.3 kg

DRUGS (3)
  1. YASMIN [Suspect]
  2. ERYTHROMYCIN [Concomitant]
  3. MULTI-VITAMIN [Concomitant]

REACTIONS (1)
  - PULMONARY EMBOLISM [None]
